FAERS Safety Report 5697463-0 (Version None)
Quarter: 2008Q2

REPORT INFORMATION
  Report Type: 
  Country: None (occurrence: None)
  Receive Date: 20080407
  Receipt Date: 20080401
  Transmission Date: 20081010
  Serious: Yes (Other)
  Sender: FDA-Public Use
  Company Number: PHEH2008US03331

PATIENT
  Age: 77 Year
  Sex: Female

DRUGS (1)
  1. VIVELLE-DOT [Suspect]
     Indication: MENOPAUSE
     Dosage: 0.05 MG DAILY, TWICE A WEEK
     Route: 062
     Dates: start: 20080225, end: 20080225

REACTIONS (5)
  - DIZZINESS [None]
  - DYSPNOEA [None]
  - EXTRASYSTOLES [None]
  - HEADACHE [None]
  - HEART RATE DECREASED [None]
